FAERS Safety Report 19260901 (Version 1)
Quarter: 2021Q2

REPORT INFORMATION
  Report Type: Spontaneous
  Country: US (occurrence: US)
  Receive Date: 20210515
  Receipt Date: 20210515
  Transmission Date: 20210717
  Serious: Yes (Hospitalization)
  Sender: FDA-Public Use
  Company Number: US-DRREDDYS-USA/USA/21/0135483

PATIENT
  Age: 84 Year
  Sex: Male

DRUGS (2)
  1. COLCHICINE. [Suspect]
     Active Substance: COLCHICINE
     Indication: MYOCARDITIS
  2. ASPIRIN. [Suspect]
     Active Substance: ASPIRIN
     Indication: MYOCARDITIS

REACTIONS (2)
  - Cardiac failure congestive [Unknown]
  - Dysgeusia [Recovering/Resolving]
